FAERS Safety Report 13254038 (Version 2)
Quarter: 2017Q2

REPORT INFORMATION
  Report Type: Spontaneous
  Country: US (occurrence: US)
  Receive Date: 20170221
  Receipt Date: 20170407
  Transmission Date: 20170830
  Serious: Yes (Hospitalization)
  Sender: FDA-Public Use
  Company Number: US-ASTRAZENECA-2017SE16794

PATIENT
  Age: 890 Month
  Sex: Male
  Weight: 62.1 kg

DRUGS (1)
  1. SYMBICORT [Suspect]
     Active Substance: BUDESONIDE\FORMOTEROL FUMARATE DIHYDRATE
     Indication: CHRONIC OBSTRUCTIVE PULMONARY DISEASE
     Dosage: 160/4.5UG,TWO INHALATIONS TWICE A DAY
     Route: 055

REACTIONS (5)
  - Weight fluctuation [Unknown]
  - Device failure [Unknown]
  - Intentional product misuse [Unknown]
  - Dyspnoea [Recovering/Resolving]
  - Drug dose omission [Unknown]

NARRATIVE: CASE EVENT DATE: 201701
